FAERS Safety Report 9430315 (Version 1)
Quarter: 2013Q3

REPORT INFORMATION
  Report Type: Spontaneous
  Country: US (occurrence: US)
  Receive Date: 20130730
  Receipt Date: 20130730
  Transmission Date: 20140515
  Serious: Yes (Other)
  Sender: FDA-Public Use
  Company Number: US-GLAXOSMITHKLINE-A1034382A

PATIENT
  Sex: Male

DRUGS (4)
  1. ADVAIR [Suspect]
     Indication: CHRONIC OBSTRUCTIVE PULMONARY DISEASE
     Route: 055
     Dates: start: 2010
  2. SPIRIVA [Suspect]
  3. PAIN MEDICATION [Concomitant]
  4. OMEPRAZOLE [Concomitant]

REACTIONS (2)
  - Impaired gastric emptying [Not Recovered/Not Resolved]
  - Drug administration error [Unknown]
